FAERS Safety Report 22057332 (Version 2)
Quarter: 2023Q1

REPORT INFORMATION
  Report Type: Spontaneous
  Country: FR (occurrence: FR)
  Receive Date: 20230303
  Receipt Date: 20230331
  Transmission Date: 20230418
  Serious: Yes (Other)
  Sender: FDA-Public Use
  Company Number: FR-AMGEN-FRASP2023026257

PATIENT

DRUGS (2)
  1. LUMAKRAS [Suspect]
     Active Substance: SOTORASIB
     Indication: Product used for unknown indication
     Dosage: UNK
     Route: 065
     Dates: end: 20230130
  2. LUMAKRAS [Suspect]
     Active Substance: SOTORASIB
     Dosage: 740 MILLIGRAM, QD
     Route: 065
     Dates: start: 20221017

REACTIONS (3)
  - Hepatotoxicity [Unknown]
  - Hepatic cytolysis [Unknown]
  - Disease progression [Unknown]
